FAERS Safety Report 6016910-8 (Version None)
Quarter: 2008Q4

REPORT INFORMATION
  Report Type: 
  Country: None (occurrence: None)
  Receive Date: 20081219
  Receipt Date: 20081211
  Transmission Date: 20090506
  Serious: Yes (Other)
  Sender: FDA-Public Use
  Company Number: 2008JP005771

PATIENT
  Sex: Male

DRUGS (8)
  1. PROGRAF [Suspect]
     Indication: RHEUMATOID ARTHRITIS
     Dosage: 1.5 MG, ORAL
     Route: 048
     Dates: start: 20070629, end: 20071111
  2. VESICARE [Suspect]
     Dosage: 10 MG, ORAL
     Route: 048
     Dates: start: 20071101, end: 20071111
  3. MOBIC [Concomitant]
  4. FOSAMAC (ALENDRONATE SODIUM) PER ORAL NOS [Concomitant]
  5. PREDNISOLONE [Concomitant]
  6. URIEF FORMULATION UNKNOWN [Concomitant]
  7. YAKUBAN (FLURBIPROFEN) FORMULATION UNKNOWN [Concomitant]
  8. MYSER (DIFLUPREDNATE) FORMULATION UNKNOWN [Concomitant]

REACTIONS (2)
  - CONDITION AGGRAVATED [None]
  - INTERSTITIAL LUNG DISEASE [None]
